FAERS Safety Report 17852209 (Version 1)
Quarter: 2020Q2

REPORT INFORMATION
  Report Type: Spontaneous
  Country: US (occurrence: US)
  Receive Date: 20200602
  Receipt Date: 20200602
  Transmission Date: 20200714
  Serious: Yes (Hospitalization, Other)
  Sender: FDA-Public Use
  Company Number: US-MYLANLABS-2020M1052772

PATIENT
  Age: 22 Year
  Sex: Female

DRUGS (2)
  1. TOBRAMYCIN. [Suspect]
     Active Substance: TOBRAMYCIN
     Dosage: 180 MILLIGRAM, QD
     Route: 042
  2. VANCOMYCIN HCL USP [Suspect]
     Active Substance: VANCOMYCIN HYDROCHLORIDE
     Indication: BRONCHIECTASIS
     Dosage: 1000 MG, TID
     Route: 042

REACTIONS (3)
  - Nephropathy toxic [Unknown]
  - Acute kidney injury [Unknown]
  - Product use in unapproved indication [Unknown]
